FAERS Safety Report 9587031 (Version 1)
Quarter: 2013Q4

REPORT INFORMATION
  Report Type: Spontaneous
  Country: FR (occurrence: FR)
  Receive Date: 20131003
  Receipt Date: 20131003
  Transmission Date: 20140711
  Serious: Yes (Hospitalization)
  Sender: FDA-Public Use
  Company Number: FR-ACTELION-A-CH2013-88827

PATIENT
  Age: 76 Year
  Sex: Male

DRUGS (5)
  1. TRACLEER [Suspect]
     Indication: PULMONARY ARTERIAL HYPERTENSION
     Dosage: 125 MG, BID
     Route: 048
     Dates: start: 20130816, end: 20130816
  2. TRACLEER [Suspect]
     Dosage: 62.5 MG, BID
     Route: 048
     Dates: start: 20130719, end: 20130815
  3. LASILIX [Concomitant]
     Dosage: 40 MG, OD
     Dates: start: 20130719
  4. CORTANCYL [Concomitant]
     Dosage: 5 MG, OD
     Dates: start: 20130719
  5. OLMETEC [Concomitant]
     Dosage: UNK
     Dates: start: 20130719

REACTIONS (7)
  - Arthralgia [Unknown]
  - Constipation [Recovered/Resolved]
  - Abdominal pain [Recovered/Resolved]
  - Asthenia [Unknown]
  - Somnolence [Unknown]
  - Depression [Unknown]
  - Renal failure [Unknown]
